FAERS Safety Report 8865466 (Version 1)
Quarter: 2012Q4

REPORT INFORMATION
  Report Type: 
  Country: US (occurrence: US)
  Receive Date: 20121024
  Receipt Date: 20121024
  Transmission Date: 20130627
  Serious: No
  Sender: FDA-Public Use
  Company Number: US-AMGEN-USASP2012003313

PATIENT
  Age: 53 Year
  Sex: Female
  Weight: 70.3 kg

DRUGS (28)
  1. ENBREL [Suspect]
     Indication: RHEUMATOID ARTHRITIS
     Dosage: 50 mg, qwk
     Route: 058
  2. METHOTREXATE [Concomitant]
     Dosage: 50 mg, UNK
     Route: 058
  3. HUMALOG [Concomitant]
     Dosage: UNK
     Route: 058
  4. CREON 10 [Concomitant]
     Dosage: UNK
     Route: 048
  5. PHENERGAN                          /00033001/ [Concomitant]
     Dosage: 25 mg, UNK
     Route: 048
  6. MARINOL                            /00003301/ [Concomitant]
     Dosage: 10 mg, UNK
     Route: 048
  7. NEXIUM                             /01479302/ [Concomitant]
     Dosage: 20 mg, UNK
     Route: 048
  8. ZESTRIL [Concomitant]
     Dosage: 10 mg, UNK
     Route: 048
  9. LASIX                              /00032601/ [Concomitant]
     Dosage: 20 mg, UNK
     Route: 048
  10. KADIAN [Concomitant]
     Dosage: 100 mg, UNK
     Route: 048
  11. NORCO [Concomitant]
     Dosage: UNK
     Route: 048
  12. SPIRIVA [Concomitant]
     Dosage: UNK
  13. XOPENEX [Concomitant]
     Dosage: UNK
  14. ADVAIR [Concomitant]
     Dosage: UNK
  15. ALLEGRA [Concomitant]
     Dosage: 30 mg, UNK
     Route: 048
  16. FLONASE [Concomitant]
     Dosage: UNK
  17. ASTELIN                            /00085801/ [Concomitant]
     Dosage: 137 mug, UNK
     Route: 045
  18. PATADAY [Concomitant]
     Dosage: UNK
  19. SINGULAIR [Concomitant]
     Dosage: 10 mg, UNK
     Route: 048
  20. VESICARE [Concomitant]
     Dosage: 10 mg, UNK
     Route: 048
  21. CARDIZEM CD [Concomitant]
     Dosage: 120 mg, qd
     Route: 048
  22. CYMBALTA [Concomitant]
     Dosage: 20 mg, UNK
     Route: 048
  23. WELLBUTRIN [Concomitant]
     Dosage: 100 mg, UNK
     Route: 048
  24. XANAX [Concomitant]
     Dosage: 0.25 mg, UNK
     Route: 048
  25. COUMADIN                           /00014802/ [Concomitant]
     Dosage: 10 mg, UNK
     Route: 048
  26. CYTOMEL [Concomitant]
     Dosage: 25 mug, UNK
     Route: 048
  27. VITAMIN D /00107901/ [Concomitant]
     Dosage: 400 IU, UNK
     Route: 048
  28. IRON [Concomitant]
     Dosage: 18 mg, UNK
     Route: 048

REACTIONS (1)
  - Rheumatoid arthritis [Unknown]
